FAERS Safety Report 10842911 (Version 3)
Quarter: 2015Q2

REPORT INFORMATION
  Report Type: Spontaneous
  Country: US (occurrence: US)
  Receive Date: 20150220
  Receipt Date: 20150525
  Transmission Date: 20150821
  Serious: Yes (Hospitalization)
  Sender: FDA-Public Use
  Company Number: US-JNJFOC-20150207530

PATIENT
  Age: 62 Year
  Sex: Male

DRUGS (1)
  1. LEVAQUIN [Suspect]
     Active Substance: LEVOFLOXACIN
     Indication: PROPHYLAXIS
     Route: 065
     Dates: start: 20150126

REACTIONS (7)
  - Insomnia [Unknown]
  - Neuropathy peripheral [Unknown]
  - Arrhythmia [Unknown]
  - Vomiting [Unknown]
  - Tendon pain [Not Recovered/Not Resolved]
  - Motor dysfunction [Unknown]
  - Syncope [Unknown]

NARRATIVE: CASE EVENT DATE: 20150126
